FAERS Safety Report 8425167-X (Version None)
Quarter: 2012Q2

REPORT INFORMATION
  Report Type: 
  Country: None (occurrence: None)
  Receive Date: 20120531
  Receipt Date: 20120523
  Transmission Date: 20120825
  Serious: No
  Sender: FDA-Public Use
  Company Number: 2012SP026330

PATIENT
  Sex: Female

DRUGS (6)
  1. LITHIUM [Concomitant]
  2. CLONAZEPAM [Concomitant]
  3. DEPAKENE [Concomitant]
  4. LEVOTHYROXINE SODIUM [Concomitant]
  5. DOSTINEX [Concomitant]
  6. SYCREST (ASENAPINE /05706901/) [Suspect]
     Indication: BIPOLAR DISORDER
     Dosage: 5 MG

REACTIONS (2)
  - BRADYCARDIA [None]
  - HYPOTENSION [None]
